FAERS Safety Report 10565176 (Version 2)
Quarter: 2014Q4

REPORT INFORMATION
  Report Type: Spontaneous
  Country: AU (occurrence: None)
  Receive Date: 20141103
  Receipt Date: 20141205
  Transmission Date: 20150529
  Serious: Yes (Hospitalization)
  Sender: FDA-Public Use
  Company Number: 2014MPI01348

PATIENT
  Age: 69 Year
  Sex: Female
  Weight: 58 kg

DRUGS (4)
  1. VINBLASTINE (VINBLASTINE SULFATE) INJECTION [Suspect]
     Active Substance: VINBLASTINE
     Indication: HODGKIN^S DISEASE
     Route: 042
     Dates: start: 20140619, end: 20141009
  2. DOXORUBICIN (DOXORUBICIN) INJECTION [Suspect]
     Active Substance: DOXORUBICIN
     Indication: HODGKIN^S DISEASE
     Dosage: 70 MG. Q14D, INTRAVENOUS
     Route: 042
     Dates: start: 20140609, end: 20141009
  3. DACARBAZINE (DACARBAZINE) [Suspect]
     Active Substance: DACARBAZINE
     Indication: HODGKIN^S DISEASE
     Dosage: 10 MG, Q14D, INTRAVENOUS
     Route: 042
     Dates: start: 20140619, end: 20141009
  4. BRENTUXIMAB VEDOTIN (BRENTUXIMAB VEDOTIN) INJECTION [Suspect]
     Active Substance: BRENTUXIMAB VEDOTIN
     Indication: HODGKIN^S DISEASE
     Dosage: 620 MG, Q14D, INTRAVENOUS
     Route: 042
     Dates: start: 20140619, end: 20141009

REACTIONS (1)
  - Syncope [None]

NARRATIVE: CASE EVENT DATE: 20141012
